FAERS Safety Report 6529433-4 (Version None)
Quarter: 2009Q4

REPORT INFORMATION
  Report Type: 
  Country: None (occurrence: None)
  Receive Date: 20091231
  Receipt Date: 20091217
  Transmission Date: 20100525
  Serious: Yes (Other)
  Sender: FDA-Public Use
  Company Number: 2009AL006735

PATIENT
  Sex: Female

DRUGS (1)
  1. FEVERALL [Suspect]
     Dosage: 1000 MG; PO
     Route: 048
     Dates: start: 20090925, end: 20090925

REACTIONS (4)
  - PARAESTHESIA ORAL [None]
  - PRODUCT QUALITY ISSUE [None]
  - TONGUE DISCOLOURATION [None]
  - TOOTH DISCOLOURATION [None]
